FAERS Safety Report 5754665-2 (Version None)
Quarter: 2008Q2

REPORT INFORMATION
  Report Type: 
  Country: None (occurrence: None)
  Receive Date: 20080530
  Receipt Date: 20080522
  Transmission Date: 20081010
  Serious: Yes (Other)
  Sender: FDA-Public Use
  Company Number: KR-GENENTECH-261553

PATIENT
  Age: 39 Year
  Sex: Male

DRUGS (4)
  1. AVASTIN [Suspect]
     Indication: CORNEAL NEOVASCULARISATION
     Dosage: 12.5 MG, BID X 3 MO
     Route: 061
  2. ARTIFICIAL TEARS [Concomitant]
     Indication: DRUG USE FOR UNKNOWN INDICATION
  3. LEVOFLOXACIN [Concomitant]
     Indication: DRUG USE FOR UNKNOWN INDICATION
  4. PREDNISOLONE ACETATE [Concomitant]
     Indication: DRUG USE FOR UNKNOWN INDICATION

REACTIONS (1)
  - CORNEAL EPITHELIUM DEFECT [None]
